FAERS Safety Report 9021994 (Version 1)
Quarter: 2013Q1

REPORT INFORMATION
  Report Type: Spontaneous
  Country: AU (occurrence: AU)
  Receive Date: 20130118
  Receipt Date: 20130118
  Transmission Date: 20140127
  Serious: Yes (Death, Disabling, Other)
  Sender: FDA-Public Use
  Company Number: AU-ROCHE-1122850

PATIENT
  Age: 52 None
  Sex: Male
  Weight: 69 kg

DRUGS (6)
  1. ZELBORAF [Suspect]
     Indication: METASTATIC MALIGNANT MELANOMA
     Route: 048
     Dates: start: 20120328, end: 20120516
  2. ZELBORAF [Suspect]
     Route: 048
     Dates: start: 20120523
  3. LIPITOR [Concomitant]
     Indication: DYSLIPIDAEMIA
     Route: 048
  4. COVERSYL [Concomitant]
     Indication: HYPERTENSION
     Route: 048
  5. POLARAMINE [Concomitant]
     Indication: PRURITUS
     Route: 048
  6. TRIAMCINOLONE [Concomitant]
     Indication: PRURITUS
     Route: 061

REACTIONS (2)
  - Metastases to central nervous system [Unknown]
  - Metastatic malignant melanoma [Fatal]
